FAERS Safety Report 9544413 (Version 1)
Quarter: 2013Q3

REPORT INFORMATION
  Report Type: Spontaneous
  Country: US (occurrence: US)
  Receive Date: 20130923
  Receipt Date: 20130923
  Transmission Date: 20140515
  Serious: No
  Sender: FDA-Public Use
  Company Number: US-GLAXOSMITHKLINE-A0991287A

PATIENT
  Age: 51 Year
  Sex: Female

DRUGS (1)
  1. ABREVA [Suspect]
     Indication: ORAL HERPES
     Dates: start: 20120825, end: 20120827

REACTIONS (13)
  - Oral herpes [Not Recovered/Not Resolved]
  - Condition aggravated [Not Recovered/Not Resolved]
  - Application site pain [Not Recovered/Not Resolved]
  - Application site pain [Not Recovered/Not Resolved]
  - Application site pruritus [Not Recovered/Not Resolved]
  - Eating disorder [Not Recovered/Not Resolved]
  - Application site erythema [Unknown]
  - Application site swelling [Unknown]
  - Oral mucosal blistering [Unknown]
  - Hypersensitivity [Unknown]
  - Gingival erythema [Unknown]
  - Gingival swelling [Unknown]
  - Infection [Unknown]
